FAERS Safety Report 21602548 (Version 1)
Quarter: 2022Q4

REPORT INFORMATION
  Report Type: Spontaneous
  Country: US (occurrence: US)
  Receive Date: 20221116
  Receipt Date: 20221116
  Transmission Date: 20230113
  Serious: Yes (Hospitalization)
  Sender: FDA-Public Use
  Company Number: US-MYLANLABS-2022M1127517

PATIENT
  Age: 65 Year
  Sex: Female

DRUGS (18)
  1. LEVALBUTEROL [Suspect]
     Active Substance: LEVALBUTEROL
     Indication: Subcutaneous emphysema
     Dosage: UNK
     Route: 065
  2. LEVALBUTEROL [Suspect]
     Active Substance: LEVALBUTEROL
     Indication: Pneumomediastinum
  3. LEVALBUTEROL [Suspect]
     Active Substance: LEVALBUTEROL
     Indication: Pneumothorax
  4. IPRATROPIUM [Suspect]
     Active Substance: IPRATROPIUM
     Indication: Subcutaneous emphysema
     Dosage: UNK
     Route: 065
  5. IPRATROPIUM [Suspect]
     Active Substance: IPRATROPIUM
     Indication: Pneumomediastinum
  6. IPRATROPIUM [Suspect]
     Active Substance: IPRATROPIUM
     Indication: Pneumothorax
  7. BUDESONIDE [Suspect]
     Active Substance: BUDESONIDE
     Indication: Subcutaneous emphysema
     Dosage: UNK
     Route: 065
  8. BUDESONIDE [Suspect]
     Active Substance: BUDESONIDE
     Indication: Pneumomediastinum
  9. BUDESONIDE [Suspect]
     Active Substance: BUDESONIDE
     Indication: Pneumothorax
  10. MAGNESIUM [Suspect]
     Active Substance: MAGNESIUM
     Indication: Subcutaneous emphysema
     Dosage: UNK
     Route: 065
  11. MAGNESIUM [Suspect]
     Active Substance: MAGNESIUM
     Indication: Pneumomediastinum
  12. MAGNESIUM [Suspect]
     Active Substance: MAGNESIUM
     Indication: Pneumothorax
  13. TERBUTALINE [Suspect]
     Active Substance: TERBUTALINE
     Indication: Subcutaneous emphysema
     Dosage: UNK
     Route: 065
  14. TERBUTALINE [Suspect]
     Active Substance: TERBUTALINE
     Indication: Pneumomediastinum
  15. TERBUTALINE [Suspect]
     Active Substance: TERBUTALINE
     Indication: Pneumothorax
  16. THEOPHYLLINE [Suspect]
     Active Substance: THEOPHYLLINE
     Indication: Subcutaneous emphysema
     Dosage: UNK
     Route: 065
  17. THEOPHYLLINE [Suspect]
     Active Substance: THEOPHYLLINE
     Indication: Pneumomediastinum
  18. THEOPHYLLINE [Suspect]
     Active Substance: THEOPHYLLINE
     Indication: Pneumothorax

REACTIONS (2)
  - Therapy non-responder [Unknown]
  - Off label use [Unknown]
